FAERS Safety Report 10472453 (Version 1)
Quarter: 2014Q3

REPORT INFORMATION
  Report Type: Spontaneous
  Country: US (occurrence: None)
  Receive Date: 20140923
  Receipt Date: 20140923
  Transmission Date: 20150326
  Serious: Yes (Other)
  Sender: FDA-Public Use
  Company Number: None

PATIENT
  Age: 27 Year
  Sex: Female
  Weight: 68.95 kg

DRUGS (1)
  1. EXCEDRIN EXTRA STRENGTH [Suspect]
     Active Substance: ACETAMINOPHEN\ASPIRIN\CAFFEINE
     Indication: HEADACHE
     Dates: start: 20140921

REACTIONS (9)
  - Feeling abnormal [None]
  - Somnolence [None]
  - Hallucination [None]
  - Headache [None]
  - Inappropriate schedule of drug administration [None]
  - Drug ineffective [None]
  - Nausea [None]
  - Dizziness [None]
  - Limb discomfort [None]

NARRATIVE: CASE EVENT DATE: 20140921
